FAERS Safety Report 16411390 (Version 1)
Quarter: 2019Q2

REPORT INFORMATION
  Report Type: Spontaneous
  Country: CA (occurrence: CA)
  Receive Date: 20190610
  Receipt Date: 20190610
  Transmission Date: 20190711
  Serious: Yes (Other)
  Sender: FDA-Public Use
  Company Number: CA-TEVA-2019-CA-1060406

PATIENT
  Age: 49 Year
  Sex: Female

DRUGS (6)
  1. TACROLIMUS. [Suspect]
     Active Substance: TACROLIMUS
     Indication: POLYMYOSITIS
     Dosage: 6 MILLIGRAM DAILY;
     Route: 065
  2. IMMUNOGLOBULIN/00025201/ [Concomitant]
     Indication: POLYMYOSITIS
     Route: 042
  3. TACROLIMUS. [Suspect]
     Active Substance: TACROLIMUS
     Indication: MYASTHENIA GRAVIS
  4. PREDNISONE. [Suspect]
     Active Substance: PREDNISONE
     Indication: POLYMYOSITIS
     Route: 065
  5. PREDNISONE. [Suspect]
     Active Substance: PREDNISONE
     Indication: MYASTHENIA GRAVIS
     Route: 065
  6. IMMUNOGLOBULIN/00025201/ [Concomitant]
     Indication: MYASTHENIA GRAVIS
     Route: 042

REACTIONS (2)
  - Treatment failure [Unknown]
  - Adverse drug reaction [Unknown]
